FAERS Safety Report 4985060-1 (Version None)
Quarter: 2006Q2

REPORT INFORMATION
  Report Type: 
  Country: None (occurrence: None)
  Receive Date: 20060421
  Receipt Date: 20060405
  Transmission Date: 20061013
  Serious: Yes (Other)
  Sender: FDA-Public Use
  Company Number: 2006RR-01985

PATIENT
  Age: 4 Year
  Sex: Female

DRUGS (3)
  1. CETIRIZINE(CETIRIZINE) UNKNOWN [Suspect]
     Indication: RHINITIS ALLERGIC
     Dosage: 5 MG, QD;
  2. OTC EXPECTORANT (MEPYRAMINE) UNKNOWN [Suspect]
     Dosage: 10 MG,
  3. GUAIFENESIN (GUAIFENESIN) UNKNOWN [Suspect]
     Dosage: 50 MG,

REACTIONS (5)
  - DYSKINESIA [None]
  - DYSTONIA [None]
  - FATIGUE [None]
  - TIC [None]
  - TORTICOLLIS [None]
